FAERS Safety Report 5798833-2 (Version None)
Quarter: 2008Q2

REPORT INFORMATION
  Report Type: 
  Country: None (occurrence: None)
  Receive Date: 20080630
  Receipt Date: 20080616
  Transmission Date: 20081010
  Serious: Yes (Death, Disabling)
  Sender: FDA-Public Use
  Company Number: 001369

PATIENT
  Age: 37 Year
  Sex: Male

DRUGS (6)
  1. BUSULFEX [Suspect]
     Indication: STEM CELL TRANSPLANT
     Dosage: 32 ML INTRAVENOUS
     Route: 042
     Dates: start: 20070825, end: 20070826
  2. FLUDARABINE PHOSPHATE [Concomitant]
  3. VALPROATE SODIUM [Concomitant]
  4. NEUPOGEN [Concomitant]
  5. METHOTREXATE [Concomitant]
  6. TACROLIMUS [Concomitant]

REACTIONS (8)
  - ANOREXIA [None]
  - BONE MARROW TRANSPLANT REJECTION [None]
  - DIARRHOEA [None]
  - ENCEPHALITIS VIRAL [None]
  - ENGRAFT FAILURE [None]
  - GASTROINTESTINAL HAEMORRHAGE [None]
  - HEPATIC FAILURE [None]
  - PNEUMONIA [None]
